FAERS Safety Report 5409936-6 (Version None)
Quarter: 2007Q3

REPORT INFORMATION
  Report Type: 
  Country: None (occurrence: None)
  Receive Date: 20070807
  Receipt Date: 20070723
  Transmission Date: 20080115
  Serious: Yes (Hospitalization)
  Sender: FDA-Public Use
  Company Number: S07-JPN-03322-01

PATIENT
  Age: 42 Year
  Sex: Female
  Weight: 48.2 kg

DRUGS (17)
  1. ESCITALOPRAM OXALATE [Suspect]
     Indication: MAJOR DEPRESSION
     Dosage: 20 MG QD PO
     Route: 048
     Dates: start: 20070327, end: 20070409
  2. ESCITALOPRAM OXALATE [Suspect]
     Indication: MAJOR DEPRESSION
     Dosage: 10 MG QD PO
     Route: 048
     Dates: start: 20070410, end: 20070521
  3. ESCITALOPRAM OXALATE [Suspect]
     Indication: MAJOR DEPRESSION
     Dosage: 20 MG QD PO
     Route: 048
     Dates: start: 20070522, end: 20070611
  4. ESCITALOPRAM OXALATE [Suspect]
     Indication: MAJOR DEPRESSION
     Dosage: 20 MG  QD PO
     Route: 048
     Dates: start: 20070615, end: 20070711
  5. ESCITALOPRAM OXALATE [Suspect]
     Indication: MAJOR DEPRESSION
     Dosage: 10 MG QD PO
     Route: 048
     Dates: start: 20070130, end: 20070326
  6. LASIX [Suspect]
     Indication: HYPERKALAEMIA
     Dosage: 20 MG QD PO
     Route: 048
     Dates: start: 20060901, end: 20070711
  7. ALCOHOL [Suspect]
  8. ALPRAZOLAM [Concomitant]
  9. ROHYPNOL      (FLUNITRAZEPAM) [Concomitant]
  10. GASMOTIN           (MOSAPRIDE CITRATE) [Concomitant]
  11. FAMOTIDINE [Concomitant]
  12. LEVOTHYROXINE SODIUM [Concomitant]
  13. ALLOPURINOL [Concomitant]
  14. BISACODYL [Concomitant]
  15. NAUZELIN         (DOMPERIDONE) [Concomitant]
  16. ALESION      (EPINASTINE HYDROCHLORIDE) [Concomitant]
  17. MEDICON             (DEXTROMETHORPHAN  HYDROBROMIDE) [Concomitant]

REACTIONS (14)
  - ALCOHOL USE [None]
  - ALCOHOLIC LIVER DISEASE [None]
  - ALCOHOLISM [None]
  - BLOOD POTASSIUM DECREASED [None]
  - BLOOD SODIUM DECREASED [None]
  - BUNDLE BRANCH BLOCK BILATERAL [None]
  - DRUG EFFECT DECREASED [None]
  - ELECTROCARDIOGRAM ST-T CHANGE [None]
  - ELECTROLYTE IMBALANCE [None]
  - HEPATITIS ACUTE [None]
  - ORAL INTAKE REDUCED [None]
  - SOMNOLENCE [None]
  - STOMATITIS [None]
  - VOMITING [None]
